FAERS Safety Report 6143463-6 (Version None)
Quarter: 2009Q2

REPORT INFORMATION
  Report Type: 
  Country: None (occurrence: None)
  Receive Date: 20090403
  Receipt Date: 20090326
  Transmission Date: 20091009
  Serious: Yes (Hospitalization, Other)
  Sender: FDA-Public Use
  Company Number: PHHY2009AT10349

PATIENT
  Sex: Female
  Weight: 70 kg

DRUGS (4)
  1. ACLASTA [Suspect]
     Indication: OSTEOPOROSIS
     Dosage: 5 MG
     Dates: start: 20090304
  2. PLAVIX [Concomitant]
     Dosage: UNK
  3. CO-ENAC [Concomitant]
     Dosage: UNK
  4. LANSOBENE [Concomitant]
     Dosage: UNK

REACTIONS (8)
  - CIRCULATORY COLLAPSE [None]
  - DIARRHOEA [None]
  - FALL [None]
  - FRACTURE REDUCTION [None]
  - JAW FRACTURE [None]
  - NAUSEA [None]
  - SPONDYLOLISTHESIS [None]
  - VOMITING [None]
